FAERS Safety Report 24894238 (Version 2)
Quarter: 2025Q1

REPORT INFORMATION
  Report Type: Spontaneous
  Country: GB (occurrence: GB)
  Receive Date: 20250128
  Receipt Date: 20250205
  Transmission Date: 20250409
  Serious: Yes (Other)
  Sender: ORGANON
  Company Number: None

PATIENT
  Age: 44 Year

DRUGS (11)
  1. MONTELUKAST SODIUM [Suspect]
     Active Substance: MONTELUKAST SODIUM
     Dosage: EVERY NIGHT, 28 TABLET - PATIENT STATES STOPPED TAKING AFTER 3 DAY DUE TO GETTING INTRUSIVE THOUGHTS
  2. PREDNISOLONE [Concomitant]
     Active Substance: PREDNISOLONE
  3. ALBUTEROL [Concomitant]
     Active Substance: ALBUTEROL
  4. FLUTICASONE FUROATE\VILANTEROL TRIFENATATE [Concomitant]
     Active Substance: FLUTICASONE FUROATE\VILANTEROL TRIFENATATE
  5. DOXYCYCLINE [Concomitant]
     Active Substance: DOXYCYCLINE
  6. INCLISIRAN [Concomitant]
     Active Substance: INCLISIRAN
  7. MIRTAZAPINE [Concomitant]
     Active Substance: MIRTAZAPINE
     Dosage: AT NIGHT, 28 TABLET
  8. FERROUS SULFATE [Concomitant]
     Active Substance: FERROUS SULFATE
     Dosage: 200MG TABLETS, ONE TO BE TAKEN TWICE A DAY,112 TABLET
  9. FOLIC ACID [Concomitant]
     Active Substance: FOLIC ACID
     Dosage: 5MG TABLETS, ONE TO BE TAKEN EACH DAY,90 TABLET
  10. OMEPRAZOLE [Concomitant]
     Active Substance: OMEPRAZOLE
     Dosage: 40MG GASTRO-RESISTANT CAPSULES, ONE TO BE TAKEN EACH DAY,56 CAPSULE
  11. DOCUSATE [Concomitant]
     Active Substance: DOCUSATE

REACTIONS (1)
  - Self-injurious ideation [Unknown]
